FAERS Safety Report 5080213-9 (Version None)
Quarter: 2006Q3

REPORT INFORMATION
  Report Type: 
  Country: None (occurrence: None)
  Receive Date: 20060815
  Receipt Date: 20060605
  Transmission Date: 20061208
  Serious: Yes (Other)
  Sender: FDA-Public Use
  Company Number: PHEH2006US07287

PATIENT
  Age: 74 Year
  Sex: Female

DRUGS (7)
  1. CLONIDINE [Concomitant]
     Indication: HYPERTENSION
     Dosage: 0.1 MG, QD
  2. AXID [Concomitant]
     Indication: GASTROOESOPHAGEAL REFLUX DISEASE
     Dosage: 150 MG, BID
  3. LOTREL [Concomitant]
     Indication: HYPERTENSION
  4. ACTONEL [Concomitant]
     Indication: OSTEOPENIA
  5. LESCOL XL [Suspect]
     Indication: HYPERCHOLESTEROLAEMIA
     Dosage: UNK, UNK
     Dates: start: 20050801, end: 20060101
  6. GLUCOPHAGE [Concomitant]
     Indication: DIABETES MELLITUS
  7. STARLIX [Concomitant]
     Indication: DIABETES MELLITUS

REACTIONS (5)
  - ANOREXIA [None]
  - BLOOD IRON DECREASED [None]
  - NAUSEA [None]
  - PLATELET COUNT INCREASED [None]
  - WEIGHT DECREASED [None]
